FAERS Safety Report 6547219-1 (Version None)
Quarter: 2010Q1

REPORT INFORMATION
  Report Type: 
  Country: None (occurrence: None)
  Receive Date: 20100122
  Receipt Date: 20100118
  Transmission Date: 20100710
  Serious: Yes (Other)
  Sender: FDA-Public Use
  Company Number: FR-SANOFI-AVENTIS-2010SA003013

PATIENT
  Age: 59 Year
  Sex: Male

DRUGS (5)
  1. KARDEGIC [Suspect]
     Indication: PERIPHERAL ARTERIAL OCCLUSIVE DISEASE
     Route: 048
     Dates: start: 20070101
  2. PLAVIX [Suspect]
     Indication: PERIPHERAL ARTERIAL OCCLUSIVE DISEASE
     Route: 048
     Dates: start: 20070101
  3. VIDEX [Suspect]
     Route: 048
     Dates: start: 20030101
  4. VIREAD [Suspect]
     Route: 048
     Dates: start: 20030101
  5. SUSTIVA [Suspect]
     Route: 048
     Dates: start: 20030101

REACTIONS (2)
  - DRY MOUTH [None]
  - XEROPHTHALMIA [None]
